FAERS Safety Report 4422147-6 (Version None)
Quarter: 2004Q3

REPORT INFORMATION
  Report Type: 
  Country: None (occurrence: None)
  Receive Date: 20040712
  Receipt Date: 20030711
  Transmission Date: 20050211
  Serious: Yes (Life-Threatening, Hospitalization)
  Sender: FDA-Public Use
  Company Number: TAP2003Q01677

PATIENT
  Age: 77 Year
  Sex: Male

DRUGS (6)
  1. PREVACID [Suspect]
     Indication: OESOPHAGITIS
     Dosage: 30 MG, 1 IN 1 D; PER ORAL
     Route: 048
     Dates: start: 20030501, end: 20030607
  2. PLAVIX [Concomitant]
  3. LOPRESSOR [Concomitant]
  4. AMIODARONE [Concomitant]
  5. ASPIRIN [Concomitant]
  6. SYNTHROID [Concomitant]

REACTIONS (1)
  - HEPATIC FAILURE [None]
